FAERS Safety Report 8281631-8 (Version None)
Quarter: 2012Q2

REPORT INFORMATION
  Report Type: 
  Country: None (occurrence: None)
  Receive Date: 20120413
  Receipt Date: 20120406
  Transmission Date: 20120825
  Serious: Yes (Other)
  Sender: FDA-Public Use
  Company Number: US-PFIZER INC-2012087953

PATIENT
  Sex: Female

DRUGS (2)
  1. GLUCOTROL [Suspect]
     Dosage: 5 MG, 2X/DAY
  2. NEURONTIN [Suspect]
     Dosage: 300 MG, 3X/DAY

REACTIONS (1)
  - LEG AMPUTATION [None]
